FAERS Safety Report 9341493 (Version 1)
Quarter: 2013Q2

REPORT INFORMATION
  Report Type: Spontaneous
  Country: US (occurrence: US)
  Receive Date: 20130611
  Receipt Date: 20130611
  Transmission Date: 20140414
  Serious: No
  Sender: FDA-Public Use
  Company Number: US-009507513-1305USA017700

PATIENT
  Sex: Female

DRUGS (2)
  1. DULERA [Suspect]
     Dosage: UNK
     Route: 055
     Dates: start: 20130527
  2. BENADRYL [Concomitant]

REACTIONS (4)
  - Rhinorrhoea [Unknown]
  - Pneumothorax [Recovering/Resolving]
  - Aphthous stomatitis [Recovering/Resolving]
  - Rash [Recovering/Resolving]
